FAERS Safety Report 8045523-1 (Version None)
Quarter: 2012Q1

REPORT INFORMATION
  Report Type: 
  Country: None (occurrence: None)
  Receive Date: 20120113
  Receipt Date: 20120106
  Transmission Date: 20120608
  Serious: Yes (Other)
  Sender: FDA-Public Use
  Company Number: US-SANOFI-AVENTIS-2012SA001428

PATIENT
  Sex: Male

DRUGS (4)
  1. NOVOLOG [Concomitant]
  2. LANTUS [Suspect]
     Dosage: DOSE:15 UNIT(S)
     Route: 058
     Dates: start: 20090301
  3. LISINOPRIL [Concomitant]
  4. SOLOSTAR [Suspect]
     Dates: start: 20090301

REACTIONS (3)
  - INCORRECT ROUTE OF DRUG ADMINISTRATION [None]
  - LIMB OPERATION [None]
  - BLOOD GLUCOSE INCREASED [None]
